FAERS Safety Report 20029943 (Version 1)
Quarter: 2021Q4

REPORT INFORMATION
  Report Type: Spontaneous
  Country: CN (occurrence: CN)
  Receive Date: 20211103
  Receipt Date: 20211103
  Transmission Date: 20220304
  Serious: Yes (Life-Threatening, Hospitalization, Other)
  Sender: FDA-Public Use
  Company Number: CN-LUPIN PHARMACEUTICALS INC.-2021-21266

PATIENT
  Age: 46 Year
  Sex: Male

DRUGS (7)
  1. AZITHROMYCIN [Suspect]
     Active Substance: AZITHROMYCIN
     Indication: Legionella infection
     Dosage: UNK
     Route: 065
  2. MOXIFLOXACIN HYDROCHLORIDE [Suspect]
     Active Substance: MOXIFLOXACIN HYDROCHLORIDE
     Indication: Legionella infection
     Dosage: UNK
     Route: 065
     Dates: start: 202102
  3. MOXIFLOXACIN HYDROCHLORIDE [Suspect]
     Active Substance: MOXIFLOXACIN HYDROCHLORIDE
     Indication: Cystic lung disease
  4. IMIPENEM [Suspect]
     Active Substance: IMIPENEM
     Indication: Cystic lung disease
     Dosage: UNK
     Route: 065
     Dates: start: 202102
  5. MEROPENEM [Suspect]
     Active Substance: MEROPENEM
     Indication: Cystic lung disease
     Dosage: UNK
     Route: 065
     Dates: start: 202102
  6. PIPERACILLIN SODIUM\TAZOBACTAM SODIUM [Suspect]
     Active Substance: PIPERACILLIN SODIUM\TAZOBACTAM SODIUM
     Indication: Legionella infection
     Dosage: UNK
     Route: 065
     Dates: start: 202102
  7. OSELTAMIVIR [Concomitant]
     Active Substance: OSELTAMIVIR
     Indication: Cystic lung disease
     Dosage: UNK
     Route: 065
     Dates: start: 202102

REACTIONS (1)
  - Bronchopulmonary aspergillosis [Unknown]

NARRATIVE: CASE EVENT DATE: 20210201
